FAERS Safety Report 18774585 (Version 3)
Quarter: 2021Q1

REPORT INFORMATION
  Report Type: Spontaneous
  Country: US (occurrence: US)
  Receive Date: 20210122
  Receipt Date: 20210219
  Transmission Date: 20210419
  Serious: Yes (Other)
  Sender: FDA-Public Use
  Company Number: US-ASTRAZENECA-2021A010100

PATIENT
  Age: 1122 Month
  Sex: Male
  Weight: 83.9 kg

DRUGS (2)
  1. SYMBICORT [Suspect]
     Active Substance: BUDESONIDE\FORMOTEROL FUMARATE DIHYDRATE
     Indication: CHRONIC OBSTRUCTIVE PULMONARY DISEASE
     Dosage: 80 MCG/4.5 MCG 2 PUFFS,TWO TIMES A DAY
     Route: 055
  2. CARBIDOPA. [Suspect]
     Active Substance: CARBIDOPA
     Indication: PARKINSON^S DISEASE
     Dosage: 25 FOUR TIMES A DAY
     Route: 065

REACTIONS (5)
  - Dizziness [Unknown]
  - Parkinson^s disease [Unknown]
  - Headache [Not Recovered/Not Resolved]
  - Vertigo [Unknown]
  - Device issue [Unknown]

NARRATIVE: CASE EVENT DATE: 202011
